FAERS Safety Report 17498532 (Version 1)
Quarter: 2020Q1

REPORT INFORMATION
  Report Type: Spontaneous
  Country: FR (occurrence: FR)
  Receive Date: 20200304
  Receipt Date: 20200304
  Transmission Date: 20200409
  Serious: Yes (Hospitalization)
  Sender: FDA-Public Use
  Company Number: NVSC2020FR054677

PATIENT
  Age: 32 Year
  Sex: Female

DRUGS (3)
  1. PARACETAMOL [Suspect]
     Active Substance: ACETAMINOPHEN
     Indication: TOXICITY TO VARIOUS AGENTS
     Dosage: 16 G
     Route: 048
     Dates: start: 20191125, end: 20191125
  2. VOGALENE [Suspect]
     Active Substance: METOPIMAZINE
     Indication: TOXICITY TO VARIOUS AGENTS
     Dosage: 2 DF
     Route: 048
     Dates: start: 20191125, end: 20191125
  3. ALPRAZOLAM. [Suspect]
     Active Substance: ALPRAZOLAM
     Indication: TOXICITY TO VARIOUS AGENTS
     Dosage: 6.25 MG
     Route: 048
     Dates: start: 20191125, end: 20191125

REACTIONS (1)
  - Somnolence [Recovered/Resolved]

NARRATIVE: CASE EVENT DATE: 20191125
